FAERS Safety Report 16862291 (Version 1)
Quarter: 2019Q3

REPORT INFORMATION
  Report Type: Spontaneous
  Country: US (occurrence: US)
  Receive Date: 20190927
  Receipt Date: 20190927
  Transmission Date: 20191005
  Serious: Yes (Other)
  Sender: FDA-Public Use
  Company Number: US-TORRENT-00009215

PATIENT
  Sex: Female

DRUGS (1)
  1. LAMOTRIGINE. [Suspect]
     Active Substance: LAMOTRIGINE
     Indication: EPILEPSY
     Dosage: UNKNOWN
     Dates: start: 2019

REACTIONS (8)
  - Hepatic enzyme increased [Unknown]
  - Anger [Unknown]
  - Disability [Unknown]
  - Aggression [Unknown]
  - Impaired work ability [Unknown]
  - Influenza like illness [Unknown]
  - Drug ineffective [Unknown]
  - Movement disorder [Unknown]

NARRATIVE: CASE EVENT DATE: 2019
